FAERS Safety Report 4323419-6 (Version None)
Quarter: 2004Q1

REPORT INFORMATION
  Report Type: 
  Country: None (occurrence: None)
  Receive Date: 20040322
  Receipt Date: 20040315
  Transmission Date: 20041129
  Serious: Yes (Hospitalization, Other)
  Sender: FDA-Public Use
  Company Number: 2004-03-0874

PATIENT
  Age: 58 Year
  Sex: Female
  Weight: 85 kg

DRUGS (4)
  1. PEG-INTRON [Suspect]
     Indication: HEPATITIS
     Dosage: 120 MCG QWK SUBCUTANEOUS
     Route: 058
     Dates: start: 20031124, end: 20040301
  2. REBETOL [Suspect]
     Indication: HEPATITIS
     Dosage: 1200 MG QD ORAL
     Route: 048
     Dates: start: 20031124, end: 20040301
  3. EUTHYROX TABLETS [Concomitant]
  4. AMITRIPTYLINE HYDROCHLORIDE [Concomitant]

REACTIONS (5)
  - ALVEOLITIS [None]
  - GENERAL PHYSICAL HEALTH DETERIORATION [None]
  - PNEUMONIA [None]
  - RESPIRATORY FAILURE [None]
  - RESPIRATORY GAS EXCHANGE DISORDER [None]
